FAERS Safety Report 6560568-6 (Version None)
Quarter: 2010Q1

REPORT INFORMATION
  Report Type: 
  Country: None (occurrence: None)
  Receive Date: 20100129
  Receipt Date: 20050804
  Transmission Date: 20100710
  Serious: No
  Sender: FDA-Public Use
  Company Number: US-ALLERGAN-200502156

PATIENT
  Age: 78 Year
  Sex: Female

DRUGS (2)
  1. BOTOX COSMETIC [Suspect]
     Indication: SKIN WRINKLING
     Route: 030
  2. RESTYLANE [Suspect]
     Indication: SKIN WRINKLING

REACTIONS (1)
  - DERMATITIS [None]
